FAERS Safety Report 12255321 (Version 5)
Quarter: 2016Q2

REPORT INFORMATION
  Report Type: Spontaneous
  Country: CA (occurrence: CA)
  Receive Date: 20160412
  Receipt Date: 20160510
  Transmission Date: 20160815
  Serious: Yes (Life-Threatening, Hospitalization)
  Sender: FDA-Public Use
  Company Number: CA-BEH-2016061261

PATIENT
  Age: 60 Year
  Sex: Female

DRUGS (10)
  1. ALBUREX [Suspect]
     Active Substance: ALBUMIN HUMAN
     Indication: GLOMERULONEPHRITIS
     Dosage: 3 X 500 ML, FLOW RATE 100, TIME 61 MIN
     Dates: start: 20160317, end: 20160317
  2. ALBUREX [Suspect]
     Active Substance: ALBUMIN HUMAN
     Dates: end: 20160317
  3. CITRATE DEXTROSE FORMULA A [Concomitant]
  4. ALBUREX [Suspect]
     Active Substance: ALBUMIN HUMAN
     Dosage: FLOW RATE 119, TIME 46 MIN
     Dates: start: 20160318, end: 20160318
  5. ALBUREX [Suspect]
     Active Substance: ALBUMIN HUMAN
     Dosage: FLOW RATE 119, TIME 46 MIN
     Dates: start: 20160318, end: 20160318
  6. ALBUREX [Suspect]
     Active Substance: ALBUMIN HUMAN
     Indication: BLOOD CREATININE INCREASED
     Dosage: 4 X 500 ML, 1 X 250 ML, FLOW RATE 80, TIME 68 MIN
     Dates: start: 20160316, end: 20160316
  7. NACL 0.9% [Concomitant]
     Active Substance: SODIUM CHLORIDE
     Route: 042
  8. ZOFRAN [Concomitant]
     Active Substance: ONDANSETRON HYDROCHLORIDE
     Dates: start: 20160317
  9. ALBUREX [Suspect]
     Active Substance: ALBUMIN HUMAN
     Indication: ANTI-GLOMERULAR BASEMENT MEMBRANE ANTIBODY POSITIVE
     Dates: start: 20160314
  10. PLASMAPHERESIS [Suspect]
     Active Substance: UNSPECIFIED INGREDIENT

REACTIONS (14)
  - Eye movement disorder [Unknown]
  - Seizure [Recovered/Resolved]
  - Hypoxia [Recovered/Resolved]
  - Vomiting [Recovered/Resolved]
  - Gait disturbance [Unknown]
  - Oliguria [Unknown]
  - Aphasia [Unknown]
  - Nausea [Unknown]
  - Chromaturia [Unknown]
  - Neurogenic shock [Recovered/Resolved]
  - Hypotension [Recovered/Resolved]
  - Nausea [Recovered/Resolved]
  - Loss of consciousness [Recovered/Resolved]
  - Syncope [Recovered/Resolved]

NARRATIVE: CASE EVENT DATE: 20160316
